FAERS Safety Report 5994188-9 (Version None)
Quarter: 2008Q4

REPORT INFORMATION
  Report Type: 
  Country: None (occurrence: None)
  Receive Date: 20081212
  Receipt Date: 20080903
  Transmission Date: 20090506
  Serious: No
  Sender: FDA-Public Use
  Company Number: US-ABBOTT-08P-163-0474071-00

PATIENT
  Sex: Female
  Weight: 99.88 kg

DRUGS (6)
  1. HUMIRA [Suspect]
     Indication: RHEUMATOID ARTHRITIS
     Route: 050
     Dates: start: 20080814
  2. HUMIRA [Suspect]
  3. METHOTREXATE [Concomitant]
     Indication: RHEUMATOID ARTHRITIS
     Route: 048
     Dates: start: 20080601
  4. FOLIC ACID [Concomitant]
     Indication: RHEUMATOID ARTHRITIS
     Route: 048
     Dates: start: 20080601
  5. VICODIN [Concomitant]
     Indication: RHEUMATOID ARTHRITIS
     Dosage: 5/500MG, 1-2 TABLETS, 3 IN 1 D
     Route: 048
     Dates: start: 20080501
  6. ALPRAZOLAM [Concomitant]
     Indication: PANIC ATTACK
     Dosage: AT BED TIME
     Route: 048
     Dates: start: 20070101

REACTIONS (3)
  - COUGH [None]
  - DRUG DOSE OMISSION [None]
  - IRRITABILITY [None]
